FAERS Safety Report 11788630 (Version 1)
Quarter: 2015Q4

REPORT INFORMATION
  Report Type: Spontaneous
  Country: US (occurrence: None)
  Receive Date: 20151127
  Receipt Date: 20151127
  Transmission Date: 20160305
  Serious: Yes (Hospitalization)
  Sender: FDA-Public Use
  Company Number: 2015-PEL-000610

PATIENT
  Age: 35 Year
  Sex: Male

DRUGS (5)
  1. MAGNESIUM SULFATE. [Concomitant]
     Active Substance: MAGNESIUM SULFATE
  2. GLUCOCORTICOIDS [Concomitant]
     Active Substance: UNSPECIFIED INGREDIENT
  3. SEVOFLURANE. [Suspect]
     Active Substance: SEVOFLURANE
     Indication: STATUS ASTHMATICUS
     Route: 055
  4. AMINOPHYLLINE. [Concomitant]
     Active Substance: AMINOPHYLLINE
  5. KETAMINE [Concomitant]
     Active Substance: KETAMINE

REACTIONS (4)
  - Unresponsive to stimuli [None]
  - Mydriasis [None]
  - Brain oedema [None]
  - Cerebellar infarction [None]
